FAERS Safety Report 23178700 (Version 3)
Quarter: 2023Q4

REPORT INFORMATION
  Report Type: Spontaneous
  Country: ES (occurrence: ES)
  Receive Date: 20231113
  Receipt Date: 20231208
  Transmission Date: 20240110
  Serious: Yes (Hospitalization, Other)
  Sender: FDA-Public Use
  Company Number: ES-OPELLA-2023OHG009365

PATIENT
  Sex: Male
  Weight: 73 kg

DRUGS (26)
  1. CARBOPLATIN [Suspect]
     Active Substance: CARBOPLATIN
     Indication: Non-small cell lung cancer metastatic
     Dosage: 718.8 MG?FOA - INJECTION?ROA - INTRAVENOUS USE
     Dates: start: 20230727, end: 20230727
  2. CARBOPLATIN [Suspect]
     Active Substance: CARBOPLATIN
     Dosage: UNK
     Dates: start: 20230817, end: 20230817
  3. ACETAMINOPHEN [Suspect]
     Active Substance: ACETAMINOPHEN
     Indication: Product used for unknown indication
     Dosage: 1 MG, Q8H?FOA - UNKNOWN
  4. ACETAMINOPHEN [Suspect]
     Active Substance: ACETAMINOPHEN
     Dosage: 1 G, TID?PHARMACEUTICAL DOSE FORM TERMID: BDF-0096(UNKNOWN)
  5. PACLITAXEL [Suspect]
     Active Substance: PACLITAXEL
     Indication: Non-small cell lung cancer metastatic
     Dosage: UNK?ROA - INTRAVENOUS USE
     Dates: start: 20230817, end: 20230817
  6. PACLITAXEL [Suspect]
     Active Substance: PACLITAXEL
     Dosage: 368 MG
     Dates: start: 20230727, end: 20230727
  7. METAMIZOLE MAGNESIUM [Suspect]
     Active Substance: METAMIZOLE MAGNESIUM
     Indication: Product used for unknown indication
     Dosage: 2 G, Q8H?FOA - UNKNOWN
  8. ENOXAPARIN SODIUM [Suspect]
     Active Substance: ENOXAPARIN SODIUM
     Indication: Product used for unknown indication
     Dosage: 100 MG, Q6M?FOA - UNKNOWN?ROA - SUBCUTANEOUS USE
  9. ENOXAPARIN SODIUM [Suspect]
     Active Substance: ENOXAPARIN SODIUM
     Dosage: 100 MG, Q6M?PHARMACEUTICAL DOSE FORM TERMID: BDF-0096(UNKNOWN)
  10. FUROSEMIDE [Suspect]
     Active Substance: FUROSEMIDE
     Indication: Product used for unknown indication
     Dosage: 40 MG, QD?FOA - UNKNOWN
  11. FUROSEMIDE [Suspect]
     Active Substance: FUROSEMIDE
     Dosage: 40 MG, CONT?PHARMACEUTICAL DOSE FORM TERMID: BDF-0096(UNKNOWN)
  12. ALPRAZOLAM [Suspect]
     Active Substance: ALPRAZOLAM
     Indication: Product used for unknown indication
     Dosage: 0.25 MG, Q8H?FOA - UNKNOWN
  13. ALPRAZOLAM [Suspect]
     Active Substance: ALPRAZOLAM
     Dosage: 0.25 MG, TID?PHARMACEUTICAL DOSE FORM TERMID: BDF-0096(UNKNOWN)
  14. DOMVANALIMAB [Suspect]
     Active Substance: DOMVANALIMAB
     Indication: Non-small cell lung cancer metastatic
     Dosage: UNK?FOA - SOLUTION FOR INFUSION?ROA - INTRAVENOUS USE
     Dates: start: 20230817, end: 20230817
  15. DOMVANALIMAB [Suspect]
     Active Substance: DOMVANALIMAB
     Dosage: 1200 MG
     Dates: start: 20230727, end: 20230727
  16. ZIMBERELIMAB [Suspect]
     Active Substance: ZIMBERELIMAB
     Indication: Non-small cell lung cancer metastatic
     Dosage: 360 MG, 1) 360 MILLIGRAM(S) 2) 360 MILLIGRAM(S)?FOA - SOLUTION FOR INFUSION?ROA - INTRAVENOUS USE
     Dates: start: 20230817, end: 20230817
  17. ZIMBERELIMAB [Suspect]
     Active Substance: ZIMBERELIMAB
     Dosage: 368 MG, 1) 368 MILLIGRAM(S) 2) 368 MILLIGRAM(S)
     Dates: start: 20230727, end: 20230727
  18. ESOMEPRAZOLE [Suspect]
     Active Substance: ESOMEPRAZOLE
     Indication: Product used for unknown indication
     Dosage: 40 MG, QD?FOA - UNKNOWN
  19. ESOMEPRAZOLE [Suspect]
     Active Substance: ESOMEPRAZOLE
     Dosage: 40 MG, CONT?PHARMACEUTICAL DOSE FORM TERMID: BDF-0096(UNKNOWN)
  20. ESOMEPRAZOLE [Suspect]
     Active Substance: ESOMEPRAZOLE
  21. ONDANSETRON [Concomitant]
     Active Substance: ONDANSETRON
     Indication: Product used for unknown indication
     Dosage: UNK?FOA - (UNKNOWN)
     Dates: start: 20230820
  22. IBUPROFEN [Concomitant]
     Active Substance: IBUPROFEN
     Indication: Product used for unknown indication
     Dosage: UNK?FOA - (UNKNOWN)
     Dates: start: 20230501, end: 20230810
  23. FUROSEMIDE [Concomitant]
     Active Substance: FUROSEMIDE
     Indication: Product used for unknown indication
     Dosage: UNK?FOA - (UNKNOWN)
     Dates: start: 20230822
  24. METAMIZOLE [Concomitant]
     Active Substance: METAMIZOLE
     Indication: Product used for unknown indication
     Dosage: UNK?FOA - UNKNOWN
     Dates: start: 20230810
  25. VALIUM [Concomitant]
     Active Substance: DIAZEPAM
     Indication: Product used for unknown indication
     Dosage: UNK?FOA - UNKNOWN
     Dates: start: 20230822
  26. TRAMADOL [Concomitant]
     Active Substance: TRAMADOL\TRAMADOL HYDROCHLORIDE
     Indication: Product used for unknown indication
     Dosage: UNK?FOA - UNKNOWN
     Dates: start: 20230810, end: 20230824

REACTIONS (4)
  - Fatigue [Recovered/Resolved]
  - Vomiting [Recovered/Resolved]
  - Dysphagia [Recovered/Resolved]
  - Nausea [Recovering/Resolving]

NARRATIVE: CASE EVENT DATE: 20230820
